FAERS Safety Report 10952218 (Version 1)
Quarter: 2015Q1

REPORT INFORMATION
  Report Type: Spontaneous
  Country: US (occurrence: None)
  Receive Date: 20150226
  Receipt Date: 20150226
  Transmission Date: 20150721
  Serious: Yes (Other)
  Sender: FDA-Public Use
  Company Number: TPA2011A00560

PATIENT
  Age: 81 Year
  Sex: Female
  Weight: 52.16 kg

DRUGS (13)
  1. STOOL SOFTENER (DOCUSATE SODIUM) [Concomitant]
     Active Substance: DOCUSATE SODIUM
  2. BONIA (IANDRONATE SODIUM) [Concomitant]
  3. METFORMIN XR (METFORMIN) [Concomitant]
  4. SYNTHROID [Concomitant]
     Active Substance: LEVOTHYROXINE SODIUM
  5. VOLTAREN (DICLOFENAC DIETHYLAMINE) [Concomitant]
  6. GLUCOSAMINE (GLUCOSAMINE) [Concomitant]
     Active Substance: GLUCOSAMINE
  7. PREDNISONE (PREDNISONE) [Suspect]
     Active Substance: PREDNISONE
     Dates: start: 20101123
  8. BILBERRY (VACCINIUM MYRTILLUS) [Concomitant]
  9. BIOTIN (BIOTIN) [Concomitant]
  10. ACTOS [Suspect]
     Active Substance: PIOGLITAZONE HYDROCHLORIDE
     Indication: TYPE 2 DIABETES MELLITUS
     Route: 048
     Dates: start: 201010, end: 20101130
  11. ASPIRIN (ACETYLSALICYLIC ACID) [Concomitant]
     Active Substance: ASPIRIN
  12. B12 (CYANOCOBALAMIN) [Concomitant]
  13. SIMVASTATIN (SIMVASTATIN) [Concomitant]
     Active Substance: SIMVASTATIN

REACTIONS (16)
  - Burning sensation [None]
  - Blood glucose increased [None]
  - Dysuria [None]
  - Cystitis [None]
  - Pain in extremity [None]
  - Arthralgia [None]
  - Decreased appetite [None]
  - Oedema peripheral [None]
  - Pollakiuria [None]
  - Urine odour abnormal [None]
  - Depression [None]
  - Back pain [None]
  - Musculoskeletal pain [None]
  - Arthritis [None]
  - Dyspnoea [None]
  - Cardiac failure [None]

NARRATIVE: CASE EVENT DATE: 20100129
